FAERS Safety Report 8120596-6 (Version None)
Quarter: 2012Q1

REPORT INFORMATION
  Report Type: 
  Country: None (occurrence: None)
  Receive Date: 20120207
  Receipt Date: 20120127
  Transmission Date: 20120608
  Serious: Yes (Death, Hospitalization, Other)
  Sender: FDA-Public Use
  Company Number: US-BAXTER-2012BH001529

PATIENT
  Sex: Male

DRUGS (2)
  1. DIANEAL [Suspect]
     Indication: PERITONEAL DIALYSIS
     Route: 033
     Dates: end: 20120113
  2. EXTRANEAL [Suspect]
     Indication: PERITONEAL DIALYSIS
     Route: 033
     Dates: end: 20120113

REACTIONS (7)
  - HYPOTENSION [None]
  - GANGRENE [None]
  - PERITONEAL CLOUDY EFFLUENT [None]
  - DEHYDRATION [None]
  - ABDOMINAL DISCOMFORT [None]
  - SEPSIS [None]
  - PERITONEAL EFFLUENT LEUKOCYTE COUNT INCREASED [None]
